FAERS Safety Report 5637210-1 (Version None)
Quarter: 2008Q1

REPORT INFORMATION
  Report Type: 
  Country: None (occurrence: None)
  Receive Date: 20080225
  Receipt Date: 20080219
  Transmission Date: 20080703
  Serious: Yes (Other)
  Sender: FDA-Public Use
  Company Number: DE-AVENTIS-200810478DE

PATIENT
  Age: 67 Year
  Sex: Female

DRUGS (28)
  1. NOVALGIN                           /00039501/ [Suspect]
     Indication: PAIN
     Dosage: DOSE: 1X20 3X20 4X30
     Route: 048
     Dates: start: 20040803, end: 20040819
  2. LASIX [Suspect]
     Route: 048
     Dates: start: 20040727, end: 20040803
  3. LASIX [Suspect]
     Route: 042
     Dates: start: 20040804, end: 20040819
  4. CEFAZOLIN [Suspect]
     Indication: PSOAS ABSCESS
     Route: 042
     Dates: start: 20040727, end: 20040728
  5. CEFAZOLIN [Suspect]
     Route: 042
     Dates: start: 20040803, end: 20040812
  6. AUGMENTIN '125' [Suspect]
     Route: 042
     Dates: start: 20040816, end: 20040819
  7. FRAGMIN [Suspect]
     Route: 058
     Dates: start: 20040706, end: 20040725
  8. FRAGMIN [Suspect]
     Route: 058
     Dates: start: 20040727, end: 20040803
  9. FRAGMIN [Suspect]
     Route: 058
     Dates: start: 20040805, end: 20040819
  10. DECORTIN [Suspect]
     Indication: SYSTEMIC LUPUS ERYTHEMATOSUS
     Route: 048
     Dates: start: 20040707, end: 20040726
  11. DECORTIN [Suspect]
     Route: 048
     Dates: start: 20040728, end: 20040819
  12. PANTOZOL                           /01263202/ [Suspect]
     Route: 048
     Dates: start: 20040728, end: 20040819
  13. AMITRIPTYLINE HCL [Suspect]
     Indication: DEPRESSION
     Route: 048
     Dates: start: 20040801, end: 20040819
  14. NAVOBAN [Suspect]
     Indication: NAUSEA
     Route: 042
     Dates: start: 20040803, end: 20040818
  15. LACTULOSE [Suspect]
     Indication: CONSTIPATION
     Route: 048
     Dates: start: 20040803, end: 20040819
  16. CLINDAMYCIN HCL [Concomitant]
     Indication: PSOAS ABSCESS
     Route: 048
     Dates: start: 20040714, end: 20040726
  17. CLINDAMYCIN HCL [Concomitant]
     Route: 042
     Dates: start: 20040727, end: 20040803
  18. KALINOR                            /00031402/ [Concomitant]
     Dosage: DOSE: 3X1
     Route: 048
     Dates: start: 20040707, end: 20040726
  19. KALINOR                            /00031402/ [Concomitant]
     Dosage: DOSE: 2-2-2-2
     Route: 048
     Dates: start: 20040727, end: 20040819
  20. ACETAMINOPHEN [Concomitant]
     Indication: PAIN
     Route: 048
     Dates: start: 20040730, end: 20040803
  21. VIOXX [Concomitant]
     Indication: PAIN
     Dosage: DOSE: 1X1 TBL.
     Route: 048
     Dates: start: 20040804, end: 20040804
  22. NOVALGIN                           /00039501/ [Concomitant]
     Dosage: DOSE: 1X1 1-1-1-1
     Route: 048
     Dates: start: 20040706, end: 20040726
  23. RANITIC [Concomitant]
     Route: 048
     Dates: start: 20040710, end: 20040726
  24. PASPERTIN [Concomitant]
     Indication: NAUSEA
     Route: 048
     Dates: start: 20040727, end: 20040730
  25. PERFALGAN [Concomitant]
     Indication: PAIN
     Route: 042
     Dates: start: 20040727, end: 20040730
  26. DIMENHYDRINATE [Concomitant]
     Indication: NAUSEA
     Dosage: DOSE: 1X1
     Route: 042
     Dates: start: 20040728, end: 20040729
  27. ROHYPNOL [Concomitant]
     Dosage: DOSE: 0-0-0-1
     Route: 048
     Dates: start: 20040731, end: 20040731
  28. KONAKION [Concomitant]
     Dosage: DOSE: 2X1 AMP.
     Route: 042
     Dates: start: 20040816, end: 20040819

REACTIONS (5)
  - BLISTER [None]
  - NIKOLSKY'S SIGN [None]
  - PYREXIA [None]
  - RASH MACULAR [None]
  - STEVENS-JOHNSON SYNDROME [None]
